FAERS Safety Report 9469731 (Version 1)
Quarter: 2013Q3

REPORT INFORMATION
  Report Type: Spontaneous
  Country: US (occurrence: None)
  Receive Date: 20130820
  Receipt Date: 20130820
  Transmission Date: 20140515
  Serious: No
  Sender: FDA-Public Use
  Company Number: None

PATIENT
  Age: 40 Year
  Sex: Male
  Weight: 82.1 kg

DRUGS (1)
  1. LEVETIRACETAM [Suspect]
     Route: 048
     Dates: start: 2011

REACTIONS (2)
  - Convulsion [None]
  - Drug ineffective [None]
